FAERS Safety Report 5485612-9 (Version None)
Quarter: 2007Q4

REPORT INFORMATION
  Report Type: 
  Country: None (occurrence: None)
  Receive Date: 20071011
  Receipt Date: 20071011
  Transmission Date: 20080405
  Serious: Yes (Other)
  Sender: FDA-Public Use
  Company Number: None

PATIENT
  Sex: Female
  Weight: 0.57 kg

DRUGS (2)
  1. NEOPROFEN [Suspect]
     Indication: PATENT DUCTUS ARTERIOSUS
     Dosage: 10MG/KG -1ST DOSE- 1 DOSE IV
     Route: 042
     Dates: start: 20071004, end: 20071004
  2. NEOPROFEN [Suspect]
     Indication: PATENT DUCTUS ARTERIOSUS
     Dosage: 5 MG/KG -2ND DOSE- 1 DOSE AFTER 24H IV
     Route: 042
     Dates: start: 20071005, end: 20071005

REACTIONS (4)
  - ERYTHEMA [None]
  - FUNGAL INFECTION [None]
  - INTESTINAL PERFORATION [None]
  - NEUTROPENIA [None]
